FAERS Safety Report 20957621 (Version 1)
Quarter: 2022Q2

REPORT INFORMATION
  Report Type: Spontaneous
  Country: GB (occurrence: GB)
  Receive Date: 20220614
  Receipt Date: 20220614
  Transmission Date: 20220720
  Serious: Yes (Other)
  Sender: FDA-Public Use
  Company Number: DK-GILEAD-2021-0557283

PATIENT

DRUGS (10)
  1. TENOFOVIR [Suspect]
     Active Substance: TENOFOVIR
     Indication: HIV infection
     Dosage: 245 MILLIGRAM, QD
     Route: 065
  2. TENOFOVIR [Suspect]
     Active Substance: TENOFOVIR
     Dosage: 25 MILLIGRAM, QD
     Route: 065
     Dates: start: 201909
  3. ENTECAVIR [Suspect]
     Active Substance: ENTECAVIR
     Indication: Chronic hepatitis B
     Dosage: 0.5 MILLIGRAM, QD
     Route: 065
     Dates: start: 2014, end: 201810
  4. ENTECAVIR [Suspect]
     Active Substance: ENTECAVIR
     Dosage: 0.5 MILLIGRAM, QOD (EVERY SECOND DAY)
     Route: 065
     Dates: start: 201810, end: 2019
  5. LAMIVUDINE [Suspect]
     Active Substance: LAMIVUDINE
     Indication: HIV infection
     Dosage: 150 MILLIGRAM, BID
     Route: 065
     Dates: start: 1996, end: 2004
  6. LAMIVUDINE [Suspect]
     Active Substance: LAMIVUDINE
     Dosage: UNK
     Route: 065
     Dates: start: 201904
  7. TENOFOVIR ALAFENAMIDE [Suspect]
     Active Substance: TENOFOVIR ALAFENAMIDE
     Indication: Chronic hepatitis B
     Dosage: 25 MILLIGRAM, QD
     Route: 065
     Dates: start: 201909
  8. TENOFOVIR ALAFENAMIDE [Suspect]
     Active Substance: TENOFOVIR ALAFENAMIDE
     Dosage: 25 MILLIGRAM, ONCE EVERY 3 DAYS
     Route: 065
  9. TELBIVUDINE [Suspect]
     Active Substance: TELBIVUDINE
     Indication: HIV infection
     Dosage: UNK
     Route: 065
  10. WARFARIN [Concomitant]
     Active Substance: WARFARIN
     Indication: Atrial fibrillation
     Dosage: UNK
     Route: 065
     Dates: start: 2018

REACTIONS (5)
  - HIV associated nephropathy [Unknown]
  - Drug resistance [Unknown]
  - Drug ineffective [Unknown]
  - Viral load increased [Not Recovered/Not Resolved]
  - Off label use [Unknown]
